FAERS Safety Report 5467139-3 (Version None)
Quarter: 2007Q3

REPORT INFORMATION
  Report Type: 
  Country: None (occurrence: None)
  Receive Date: 20070921
  Receipt Date: 20070921
  Transmission Date: 20080115
  Serious: Yes (Other)
  Sender: FDA-Public Use
  Company Number: None

PATIENT
  Sex: Female
  Weight: 89.8122 kg

DRUGS (1)
  1. CHANTIX [Suspect]
     Indication: SMOKING CESSATION THERAPY
     Dosage: 0.5 MG 1XDAY PO; 1 MG 2 XDAY PO
     Route: 048
     Dates: start: 20070612, end: 20070702

REACTIONS (2)
  - ABDOMINAL PAIN [None]
  - GASTRIC DISORDER [None]
